FAERS Safety Report 6168654-X (Version None)
Quarter: 2009Q2

REPORT INFORMATION
  Report Type: 
  Country: None (occurrence: None)
  Receive Date: 20090424
  Receipt Date: 20090424
  Transmission Date: 20091009
  Serious: Yes (Life-Threatening, Hospitalization)
  Sender: FDA-Public Use
  Company Number: None

PATIENT
  Age: 73 Year
  Sex: Female
  Weight: 55 kg

DRUGS (1)
  1. HUMIRA [Suspect]
     Indication: CROHN'S DISEASE
     Dosage: 40 MG EVERY 2 WEEKS SC
     Route: 058
     Dates: start: 20081030, end: 20090209

REACTIONS (2)
  - EXTRAPULMONARY TUBERCULOSIS [None]
  - OSTEOMYELITIS [None]
